FAERS Safety Report 7308457-3 (Version None)
Quarter: 2011Q1

REPORT INFORMATION
  Report Type: 
  Country: None (occurrence: None)
  Receive Date: 20110223
  Receipt Date: 20110216
  Transmission Date: 20110831
  Serious: No
  Sender: FDA-Public Use
  Company Number: US-BIOGENIDEC-2011BI006170

PATIENT
  Age: 53 Year
  Sex: Male

DRUGS (1)
  1. AVONEX [Suspect]
     Indication: MULTIPLE SCLEROSIS
     Route: 030
     Dates: start: 20100810

REACTIONS (12)
  - PAIN IN EXTREMITY [None]
  - JOINT CREPITATION [None]
  - JOINT STIFFNESS [None]
  - PAIN [None]
  - FATIGUE [None]
  - ASTHENIA [None]
  - CHILLS [None]
  - MUSCLE TIGHTNESS [None]
  - FEELING ABNORMAL [None]
  - FALL [None]
  - JOINT LOCK [None]
  - TREMOR [None]
